FAERS Safety Report 7164440-2 (Version None)
Quarter: 2010Q4

REPORT INFORMATION
  Report Type: 
  Country: None (occurrence: None)
  Receive Date: 20101215
  Receipt Date: 20101208
  Transmission Date: 20110411
  Serious: Yes (Other)
  Sender: FDA-Public Use
  Company Number: DE-TEVA-259553GER

PATIENT
  Sex: Male

DRUGS (1)
  1. ISOTRETINOIN (ISOTRETINOIN-RATIOPHARM 10 MG) [Suspect]
     Indication: ACNE

REACTIONS (1)
  - OSTEOMYELITIS [None]
